FAERS Safety Report 24155148 (Version 2)
Quarter: 2024Q3

REPORT INFORMATION
  Report Type: Spontaneous
  Country: DE (occurrence: DE)
  Receive Date: 20240731
  Receipt Date: 20240917
  Transmission Date: 20241017
  Serious: Yes (Hospitalization, Other)
  Sender: SANDOZ
  Company Number: DE-TAKEDA-2018TEU003396

PATIENT
  Age: 48 Year
  Sex: Male

DRUGS (11)
  1. CYPROTERONE ACETATE [Suspect]
     Active Substance: CYPROTERONE ACETATE
     Indication: Paraphilia
     Dosage: 300.000MG BIW
     Route: 065
     Dates: start: 2000, end: 2002
  2. CALCIUM [Suspect]
     Active Substance: CALCIUM
     Indication: Osteoporosis
     Dosage: UNK
     Route: 065
  3. CALCIUM [Suspect]
     Active Substance: CALCIUM
     Indication: Osteopenia
  4. CHOLECALCIFEROL [Suspect]
     Active Substance: CHOLECALCIFEROL
     Indication: Osteoporosis
     Dosage: UNK
     Route: 065
  5. CHOLECALCIFEROL [Suspect]
     Active Substance: CHOLECALCIFEROL
     Indication: Osteopenia
  6. DENOSUMAB [Suspect]
     Active Substance: DENOSUMAB
     Indication: Product used for unknown indication
     Dosage: UNK
     Route: 065
  7. ENANTONE LP [Suspect]
     Active Substance: LEUPROLIDE ACETATE
     Indication: Paedophilia
     Dosage: 3.750MG
     Route: 065
  8. TRIPTORELIN PAMOATE [Suspect]
     Active Substance: TRIPTORELIN PAMOATE
     Indication: Paraphilia
     Dosage: 11.250MG
     Route: 030
     Dates: start: 2011
  9. TRENANTONE [Suspect]
     Active Substance: LEUPROLIDE ACETATE
     Route: 065
     Dates: start: 2002, end: 2011
  10. TRENANTONE [Suspect]
     Active Substance: LEUPROLIDE ACETATE
     Indication: Paraphilia
     Dosage: 3.750MG
     Route: 065
     Dates: start: 2002, end: 2011
  11. TRIPTORELIN [Suspect]
     Active Substance: TRIPTORELIN
     Indication: Product used for unknown indication
     Dosage: UNK
     Route: 065
     Dates: start: 2002, end: 2012

REACTIONS (7)
  - Osteoporosis [Unknown]
  - Calculus urinary [Recovered/Resolved]
  - Renal colic [Unknown]
  - Hyperhidrosis [Unknown]
  - Osteopenia [Unknown]
  - Hot flush [Unknown]
  - Nephrolithiasis [Unknown]

NARRATIVE: CASE EVENT DATE: 20140101
